FAERS Safety Report 8948014 (Version 1)
Quarter: 2012Q4

REPORT INFORMATION
  Report Type: 
  Country: US (occurrence: US)
  Receive Date: 20121204
  Receipt Date: 20121204
  Transmission Date: 20130627
  Serious: No
  Sender: FDA-Public Use
  Company Number: US-ASTRAZENECA-2004UW21497

PATIENT
  Age: 63 Year
  Sex: Female

DRUGS (1)
  1. NEXIUM [Suspect]
     Indication: GASTROOESOPHAGEAL REFLUX DISEASE
     Route: 048
     Dates: start: 200310

REACTIONS (4)
  - Dyspnoea [Unknown]
  - Gastrooesophageal reflux disease [Unknown]
  - Road traffic accident [Unknown]
  - Abdominal pain upper [Unknown]
